FAERS Safety Report 8132628-X (Version None)
Quarter: 2012Q1

REPORT INFORMATION
  Report Type: 
  Country: None (occurrence: None)
  Receive Date: 20120213
  Receipt Date: 20120207
  Transmission Date: 20120608
  Serious: Yes (Life-Threatening, Hospitalization, Disabling)
  Sender: FDA-Public Use
  Company Number: US-GLAXOSMITHKLINE-A0965363A

PATIENT
  Age: 14 Year
  Sex: Female
  Weight: 68.2 kg

DRUGS (1)
  1. LAMICTAL [Suspect]
     Indication: AUTISM
     Route: 048
     Dates: start: 20110901

REACTIONS (8)
  - BLEPHAROSPASM [None]
  - RASH [None]
  - AGGRESSION [None]
  - SWOLLEN TONGUE [None]
  - SCREAMING [None]
  - PROTRUSION TONGUE [None]
  - DYSKINESIA [None]
  - OFF LABEL USE [None]
